FAERS Safety Report 26136059 (Version 1)
Quarter: 2025Q4

REPORT INFORMATION
  Report Type: Spontaneous
  Country: US (occurrence: US)
  Receive Date: 20251209
  Receipt Date: 20251209
  Transmission Date: 20260117
  Serious: No
  Sender: SANOFI AVENTIS
  Company Number: US-SA-2025SA363518

PATIENT
  Age: 80 Year
  Sex: Female

DRUGS (2)
  1. DUPIXENT [Suspect]
     Active Substance: DUPILUMAB
     Indication: Eczema
     Dosage: 600MG, 1X
     Route: 058
     Dates: start: 20250714, end: 20250714
  2. DUPIXENT [Suspect]
     Active Substance: DUPILUMAB
     Dosage: 300MG, QOW
     Route: 058
     Dates: start: 2025

REACTIONS (9)
  - Immunisation reaction [Recovered/Resolved]
  - Chest discomfort [Recovered/Resolved]
  - Pyrexia [Recovered/Resolved]
  - Nausea [Recovered/Resolved]
  - Palpitations [Recovered/Resolved]
  - Nervousness [Recovered/Resolved]
  - Hyperhidrosis [Recovered/Resolved]
  - Fatigue [Recovered/Resolved]
  - Blister [Unknown]

NARRATIVE: CASE EVENT DATE: 20251128
